FAERS Safety Report 9429485 (Version 1)
Quarter: 2013Q3

REPORT INFORMATION
  Report Type: Report from Study
  Country: US (occurrence: US)
  Receive Date: 20130730
  Receipt Date: 20130730
  Transmission Date: 20140515
  Serious: No
  Sender: FDA-Public Use
  Company Number: US-ABBOTT-12P-163-0980535-00

PATIENT
  Age: 72 Year
  Sex: Male
  Weight: 79.45 kg

DRUGS (11)
  1. NIASPAN (COATED) [Suspect]
     Indication: HIGH DENSITY LIPOPROTEIN DECREASED
     Dosage: EVERY DAY
     Route: 048
     Dates: start: 2002
  2. TYLENOL [Suspect]
     Indication: PYREXIA
     Dates: start: 201208, end: 201208
  3. LIPITOR [Suspect]
     Indication: MYALGIA
     Dosage: EVERY DAY
     Route: 048
  4. ASA [Suspect]
     Indication: PRODUCT USED FOR UNKNOWN INDICATION
     Dosage: EVERY MORNING
     Route: 048
     Dates: start: 2001, end: 2001
  5. ASA [Suspect]
     Dosage: EVERY DAY
     Route: 048
     Dates: start: 2001
  6. ATENOLOL [Concomitant]
     Indication: HYPERTENSION
     Dosage: EVERY DAY
     Route: 048
  7. LOSARTAN [Concomitant]
     Indication: HYPERTENSION
     Dosage: EVERY DAY
     Route: 048
  8. ZETIA [Concomitant]
     Indication: PRODUCT USED FOR UNKNOWN INDICATION
     Dosage: UNKNOWN DOSE MG, EVERY DAY
     Route: 048
  9. NEXIUM [Concomitant]
     Indication: PRODUCT USED FOR UNKNOWN INDICATION
     Dosage: EVERY DAY
     Route: 048
  10. METFORMIN [Concomitant]
     Indication: DIABETES MELLITUS
     Route: 048
  11. METFORMIN [Concomitant]
     Dosage: DAILY
     Route: 048

REACTIONS (11)
  - Diabetes mellitus [Unknown]
  - Flushing [Recovered/Resolved]
  - Skin burning sensation [Recovered/Resolved]
  - Abdominal discomfort [Recovered/Resolved]
  - Tinnitus [Not Recovered/Not Resolved]
  - Prostate infection [Recovered/Resolved]
  - Hepatic enzyme increased [Unknown]
  - Overdose [Unknown]
  - Urinary incontinence [Unknown]
  - Myalgia [Not Recovered/Not Resolved]
  - Tinnitus [Not Recovered/Not Resolved]
